FAERS Safety Report 23950052 (Version 1)
Quarter: 2024Q2

REPORT INFORMATION
  Report Type: Report from Study
  Country: CA (occurrence: CA)
  Receive Date: 20240607
  Receipt Date: 20240607
  Transmission Date: 20240716
  Serious: Yes (Death, Hospitalization)
  Sender: FDA-Public Use
  Company Number: CA-MYLANLABS-2024M1012840

PATIENT
  Age: 60 Year
  Sex: Male
  Weight: 30.79 kg

DRUGS (8)
  1. CLOZAPINE [Suspect]
     Active Substance: CLOZAPINE
     Indication: Product used for unknown indication
     Dosage: UNK
     Route: 065
     Dates: start: 20050606
  2. CLOZAPINE [Concomitant]
     Active Substance: CLOZAPINE
     Dosage: 450 MILLIGRAM, QD (75 MG PO AT 8:00 A.M., 175 MG AT 4:00 P.M. AND 200 MG HS (HORA SOMNI [AT BEDTIME]
     Route: 048
  3. EPIVAL [Concomitant]
     Active Substance: DIVALPROEX SODIUM
     Dosage: 250 MILLIGRAM, TID
     Route: 048
     Dates: start: 20231222
  4. SEROQUEL [Concomitant]
     Active Substance: QUETIAPINE FUMARATE
     Dosage: 650 MILLIGRAM, QD (225 MG PO AT 8:00 A.M., HS AND 200 MG AT 4:00 P.M.)
     Route: 048
  5. NEURONTIN [Concomitant]
     Active Substance: GABAPENTIN
     Dosage: 100 MILLIGRAM, PM (HS)
     Route: 048
  6. ATROVENT [Concomitant]
     Active Substance: IPRATROPIUM BROMIDE
     Indication: Salivary hypersecretion
     Dosage: UNK
     Route: 045
  7. PANTOPRAZOLE SODIUM [Concomitant]
     Active Substance: PANTOPRAZOLE SODIUM
     Dosage: 40 MILLIGRAM, QD (AT 8:00 A.M)
     Route: 048
  8. ZYPREXA [Concomitant]
     Active Substance: OLANZAPINE
     Dosage: 5 MILLIGRAM,  (MAX TID + PHYSICAL THERAPY ? TO BE PRESCRIBED BY PRIMARY CARE PHYSICIAN)
     Route: 065

REACTIONS (6)
  - Myocardial infarction [Fatal]
  - Chest pain [Unknown]
  - Blood creatinine increased [Unknown]
  - Glomerular filtration rate decreased [Unknown]
  - Blood fibrinogen increased [Unknown]
  - High density lipoprotein decreased [Unknown]

NARRATIVE: CASE EVENT DATE: 20240111
